FAERS Safety Report 8444993-4 (Version None)
Quarter: 2012Q2

REPORT INFORMATION
  Report Type: 
  Country: None (occurrence: None)
  Receive Date: 20120618
  Receipt Date: 20120604
  Transmission Date: 20120825
  Serious: Yes (Hospitalization)
  Sender: FDA-Public Use
  Company Number: JP-ROCHE-1062915

PATIENT
  Sex: Female
  Weight: 47.4 kg

DRUGS (12)
  1. PLACEBO [Suspect]
     Indication: RHEUMATOID ARTHRITIS
     Route: 058
  2. CESFALKO [Concomitant]
     Indication: GASTRITIS
     Dosage: BEGINNING OF DOSAGE DAY: TRIAL PREINITIATION-
     Route: 048
  3. MYSER [Concomitant]
     Indication: WOUND
     Dosage: PROPER QUANTITY/SINGLE USE
     Route: 061
     Dates: start: 20111227
  4. LOXONIN [Concomitant]
     Route: 061
  5. LULICONAZOLE [Concomitant]
     Indication: TINEA PEDIS
     Dosage: PROPER QUANTITY/SINGLE USE BEGINNING OF DOSAGE DAY: TRIAL PREINITIATION-
     Route: 061
  6. KETOPROFEN [Concomitant]
     Indication: RHEUMATOID ARTHRITIS
     Dosage: PROPER QUANTITY/SINGLE USE
     Route: 061
     Dates: start: 20111207
  7. ACTEMRA [Suspect]
     Indication: RHEUMATOID ARTHRITIS
     Route: 058
     Dates: start: 20101117, end: 20120411
  8. LOXONIN [Concomitant]
     Indication: RHEUMATOID ARTHRITIS
     Dosage: BEGINNING OF DOSAGE DAY: TRIAL PREINITIATION-
     Route: 048
  9. LANSOPRAZOLE [Concomitant]
     Indication: GASTRITIS
     Dosage: BEGINNING OF DOSAGE DAY: TRIAL PREINITIATION-
     Route: 048
  10. SUNRYTHM [Concomitant]
     Indication: ATRIAL FIBRILLATION
     Dosage: SINGLE USE BEGINNING OF DOSAGE DAY: TRIAL PREINITIATION-
     Route: 048
  11. ACTEMRA [Suspect]
     Route: 042
     Dates: start: 20100602, end: 20101117
  12. TANATRIL [Concomitant]
     Indication: ATRIAL FIBRILLATION
     Dosage: BEGINNING OF DOSAGE DAY: TRIAL PREINITIATION-
     Route: 048

REACTIONS (1)
  - LARGE INTESTINE CARCINOMA [None]
